FAERS Safety Report 13981330 (Version 3)
Quarter: 2017Q4

REPORT INFORMATION
  Report Type: Spontaneous
  Country: US (occurrence: US)
  Receive Date: 20170918
  Receipt Date: 20171017
  Transmission Date: 20180321
  Serious: No
  Sender: FDA-Public Use
  Company Number: US-PFIZER INC-2017397498

PATIENT
  Age: 3 Year
  Sex: Female

DRUGS (1)
  1. QUILLIVANT XR [Suspect]
     Active Substance: METHYLPHENIDATE HYDROCHLORIDE
     Dosage: 100 ML, UNK

REACTIONS (6)
  - Accidental exposure to product by child [Unknown]
  - Heart rate increased [Recovered/Resolved]
  - Product use issue [Unknown]
  - Product quality issue [Unknown]
  - Accidental overdose [Unknown]
  - Muscle twitching [Recovered/Resolved]
